FAERS Safety Report 25085816 (Version 1)
Quarter: 2025Q1

REPORT INFORMATION
  Report Type: Spontaneous
  Country: US (occurrence: US)
  Receive Date: 20250317
  Receipt Date: 20250317
  Transmission Date: 20250409
  Serious: No
  Sender: LEXICON PHARMACEUTICALS
  Company Number: US-LEX-000679

PATIENT
  Age: 72 Year
  Sex: Male

DRUGS (5)
  1. INPEFA [Suspect]
     Active Substance: SOTAGLIFLOZIN
     Indication: Product used for unknown indication
     Route: 048
     Dates: start: 20230911, end: 20250217
  2. INPEFA [Suspect]
     Active Substance: SOTAGLIFLOZIN
     Indication: Product used for unknown indication
     Dosage: DOSAGE: 0.5 TABLET
     Route: 048
     Dates: start: 20250218
  3. CLOPIDOGREL [Concomitant]
     Active Substance: CLOPIDOGREL BISULFATE
  4. NEXLETOL [Concomitant]
     Active Substance: BEMPEDOIC ACID
  5. ASPIRIN [Concomitant]
     Active Substance: ASPIRIN

REACTIONS (3)
  - Dizziness [Recovered/Resolved]
  - Off label use [Unknown]
  - Wrong technique in product usage process [Unknown]

NARRATIVE: CASE EVENT DATE: 20250218
